FAERS Safety Report 18870494 (Version 3)
Quarter: 2021Q2

REPORT INFORMATION
  Report Type: Report from Study
  Country: US (occurrence: US)
  Receive Date: 20210209
  Receipt Date: 20210412
  Transmission Date: 20210717
  Serious: Yes (Other)
  Sender: FDA-Public Use
  Company Number: US-SEATTLE GENETICS-2021SGN00432

PATIENT
  Sex: Female

DRUGS (4)
  1. KEPPRA [Concomitant]
     Active Substance: LEVETIRACETAM
  2. TUCATINIB [Suspect]
     Active Substance: TUCATINIB
     Indication: BREAST CANCER FEMALE
     Dosage: 300 MG, BID
     Route: 065
  3. HERCEPTIN [Concomitant]
     Active Substance: TRASTUZUMAB
     Indication: BREAST CANCER FEMALE
     Dosage: UNK, Q3WEEKS
     Route: 042
  4. CAPECITABINE. [Concomitant]
     Active Substance: CAPECITABINE

REACTIONS (7)
  - Computerised tomogram abnormal [Unknown]
  - Product dose omission issue [Unknown]
  - Anxiety [Unknown]
  - Alopecia [Recovering/Resolving]
  - Surgery [Unknown]
  - Decreased appetite [Not Recovered/Not Resolved]
  - Depression [Unknown]
